FAERS Safety Report 19319823 (Version 1)
Quarter: 2021Q2

REPORT INFORMATION
  Report Type: Spontaneous
  Country: US (occurrence: US)
  Receive Date: 20210528
  Receipt Date: 20210528
  Transmission Date: 20210717
  Serious: Yes (Hospitalization)
  Sender: FDA-Public Use
  Company Number: None

PATIENT
  Sex: Male
  Weight: 24.7 kg

DRUGS (5)
  1. ONCASPAR [Concomitant]
     Active Substance: PEGASPARGASE
  2. METHOTREXATE. [Concomitant]
     Active Substance: METHOTREXATE
  3. CYTARABINE. [Suspect]
     Active Substance: CYTARABINE
  4. DEXAMETHASONE. [Concomitant]
     Active Substance: DEXAMETHASONE
  5. VINCRISTINE SULFATE. [Concomitant]
     Active Substance: VINCRISTINE SULFATE

REACTIONS (3)
  - Unresponsive to stimuli [None]
  - Oxygen saturation decreased [None]
  - Hypoxia [None]

NARRATIVE: CASE EVENT DATE: 20210522
